FAERS Safety Report 16833012 (Version 1)
Quarter: 2019Q3

REPORT INFORMATION
  Report Type: Spontaneous
  Country: US (occurrence: US)
  Receive Date: 20190920
  Receipt Date: 20190920
  Transmission Date: 20191005
  Serious: Yes (Hospitalization)
  Sender: FDA-Public Use
  Company Number: US-TEVA-2019-US-1109900

PATIENT
  Sex: Female

DRUGS (13)
  1. SYNRIBO [Suspect]
     Active Substance: OMACETAXINE MEPESUCCINATE
     Indication: CHRONIC MYELOID LEUKAEMIA
     Dosage: 2.25 MG/0.64 ML BID FOR 1 DAY OUT OF 28 DAYS
     Route: 065
  2. HUMALOG [Concomitant]
     Active Substance: INSULIN LISPRO
  3. PAROXETINE. [Concomitant]
     Active Substance: PAROXETINE
  4. BUPROPION. [Concomitant]
     Active Substance: BUPROPION
  5. COMPAZINE [Concomitant]
     Active Substance: PROCHLORPERAZINE MALEATE
  6. VENTOLIN [Concomitant]
     Active Substance: ALBUTEROL SULFATE
  7. PRAVASTATIN. [Concomitant]
     Active Substance: PRAVASTATIN
  8. OMEPRAZOLE. [Concomitant]
     Active Substance: OMEPRAZOLE
  9. SINGULAIR [Concomitant]
     Active Substance: MONTELUKAST SODIUM
  10. VITAMIN D3 [Concomitant]
     Active Substance: CHOLECALCIFEROL
  11. LANTUS [Concomitant]
     Active Substance: INSULIN GLARGINE
  12. ZOLOFT [Concomitant]
     Active Substance: SERTRALINE HYDROCHLORIDE
  13. MORPHINE [Concomitant]
     Active Substance: MORPHINE

REACTIONS (3)
  - Urinary tract infection [Recovering/Resolving]
  - Hallucination [Recovering/Resolving]
  - Wrist fracture [Not Recovered/Not Resolved]
